FAERS Safety Report 24624523 (Version 2)
Quarter: 2024Q4

REPORT INFORMATION
  Report Type: Spontaneous
  Country: JP (occurrence: JP)
  Receive Date: 20241115
  Receipt Date: 20241225
  Transmission Date: 20250114
  Serious: Yes (Death, Other)
  Sender: ALEXION PHARMACEUTICALS
  Company Number: JP-ASTRAZENECA-240124231_064320_P_1

PATIENT
  Age: 86 Year
  Weight: 57 kg

DRUGS (4)
  1. ANDEXXA [Suspect]
     Active Substance: ANDEXANET ALFA
     Indication: Traumatic subarachnoid haemorrhage
     Dosage: METHOD B: 800 MG IV AT A RATE OF 30 MG/MIN, FOLLOWED BY 960 MG IV AT A RATE OF 8 MG/MIN FOR 2 H
  2. ANDEXXA [Suspect]
     Active Substance: ANDEXANET ALFA
     Dosage: METHOD B: 800 MG IV AT A RATE OF 30 MG/MIN, FOLLOWED BY 960 MG IV AT A RATE OF 8 MG/MIN FOR 2 H
  3. EDOXABAN TOSYLATE [Concomitant]
     Active Substance: EDOXABAN TOSYLATE
     Dosage: DOSE UNKNOWN
  4. EDOXABAN TOSYLATE [Concomitant]
     Active Substance: EDOXABAN TOSYLATE
     Dosage: DOSE UNKNOWN

REACTIONS (2)
  - Traumatic subarachnoid haemorrhage [Fatal]
  - Blood pressure systolic decreased [Unknown]
